FAERS Safety Report 24913444 (Version 3)
Quarter: 2025Q3

REPORT INFORMATION
  Report Type: Spontaneous
  Country: JP (occurrence: JP)
  Receive Date: 20250201
  Receipt Date: 20250716
  Transmission Date: 20251020
  Serious: Yes (Hospitalization, Other)
  Sender: AMGEN
  Company Number: JP-AMGEN-JPNSP2025005459

PATIENT
  Age: 71 Year
  Sex: Female
  Weight: 53 kg

DRUGS (9)
  1. BLINCYTO [Suspect]
     Active Substance: BLINATUMOMAB
     Indication: B precursor type acute leukaemia
     Dosage: 9 MICROGRAM, QD, DRIP INFUSION
     Route: 040
     Dates: start: 20250109, end: 20250111
  2. BLINCYTO [Suspect]
     Active Substance: BLINATUMOMAB
     Dosage: 9 MICROGRAM, QD, DRIP INFUSION
     Route: 040
     Dates: start: 20250115, end: 20250117
  3. DEXAMETHASONE SODIUM PHOSPHATE [Concomitant]
     Active Substance: DEXAMETHASONE SODIUM PHOSPHATE
     Indication: B precursor type acute leukaemia
     Dosage: 16.5 MILLIGRAM, QD
     Dates: start: 20250109, end: 20250119
  4. DEXAMETHASONE SODIUM PHOSPHATE [Concomitant]
     Active Substance: DEXAMETHASONE SODIUM PHOSPHATE
     Indication: Immune effector cell-associated neurotoxicity syndrome
  5. DEXAMETHASONE SODIUM PHOSPHATE [Concomitant]
     Active Substance: DEXAMETHASONE SODIUM PHOSPHATE
     Indication: Nervous system disorder
  6. AMLODIPINE [Concomitant]
     Active Substance: AMLODIPINE BESYLATE
     Indication: Hypertension
     Dates: start: 2007
  7. ELOBIXIBAT [Concomitant]
     Active Substance: ELOBIXIBAT
     Indication: Constipation
     Dosage: 10 MILLIGRAM, QD
     Dates: start: 20220520
  8. URSODIOL [Concomitant]
     Active Substance: URSODIOL
     Indication: Hyperphosphatasaemia
     Dosage: 300 MILLIGRAM, TID
     Dates: start: 20221130
  9. SALINE [Concomitant]
     Active Substance: SODIUM CHLORIDE

REACTIONS (3)
  - Nervous system disorder [Recovered/Resolved]
  - Immune effector cell-associated neurotoxicity syndrome [Recovered/Resolved]
  - Cytokine release syndrome [Recovered/Resolved]

NARRATIVE: CASE EVENT DATE: 20250110
